FAERS Safety Report 6283013-7 (Version None)
Quarter: 2009Q3

REPORT INFORMATION
  Report Type: 
  Country: None (occurrence: None)
  Receive Date: 20090724
  Receipt Date: 20090722
  Transmission Date: 20100115
  Serious: Yes (Death)
  Sender: FDA-Public Use
  Company Number: PHHY2009JP20787

PATIENT
  Sex: Female
  Weight: 49 kg

DRUGS (11)
  1. DIOVAN [Suspect]
     Dosage: 80 MG ONCE DAILY
     Route: 048
     Dates: start: 20080213
  2. MEXITIL [Concomitant]
     Dosage: 100 MG, UNK
     Route: 048
     Dates: start: 20080213, end: 20080306
  3. PARLODEL [Concomitant]
     Dosage: 5 MG, UNK
     Route: 048
     Dates: start: 20080213, end: 20080306
  4. DIART [Concomitant]
     Dosage: 60 MG, UNK
     Route: 048
     Dates: start: 20080213, end: 20080306
  5. WINTERMIN [Concomitant]
     Dosage: 75 MG, UNK
     Route: 048
     Dates: start: 20080213, end: 20080306
  6. SERENACE [Concomitant]
     Dosage: 9 MG, UNK
     Route: 048
     Dates: start: 20080213, end: 20080306
  7. PROMETHAZINE HCL [Concomitant]
     Dosage: 75 MG, UNK
     Route: 048
     Dates: start: 20080213, end: 20080306
  8. SENNA LEAF [Concomitant]
     Dosage: 1.5 G, UNK
     Route: 048
     Dates: start: 20080213, end: 20080306
  9. VEGETAMIN A [Concomitant]
     Dosage: 2 DF, UNK
     Route: 048
     Dates: start: 20080213, end: 20080306
  10. INNOLET N [Concomitant]
     Dosage: 26 IU, UNK
     Route: 058
     Dates: start: 20080213, end: 20080306
  11. NOVORAPID [Concomitant]
     Dosage: 16 IU, UNK
     Route: 058
     Dates: start: 20080213, end: 20080306

REACTIONS (5)
  - ABDOMINAL DISTENSION [None]
  - ABDOMINAL PAIN [None]
  - CARDIO-RESPIRATORY ARREST [None]
  - GASTROINTESTINAL HAEMORRHAGE [None]
  - PSYCHIATRIC SYMPTOM [None]
